FAERS Safety Report 10631074 (Version 1)
Quarter: 2014Q4

REPORT INFORMATION
  Report Type: Spontaneous
  Country: US (occurrence: None)
  Receive Date: 20141121
  Receipt Date: 20141121
  Transmission Date: 20150529
  Serious: No
  Sender: FDA-Public Use
  Company Number: 163-10004-14091758

PATIENT
  Age: 62 Year
  Sex: Female
  Weight: 78.02 kg

DRUGS (1)
  1. OTEZLA [Suspect]
     Active Substance: APREMILAST
     Indication: PSORIATIC ARTHROPATHY
     Route: 048
     Dates: start: 20140817, end: 20140901

REACTIONS (2)
  - Rash [None]
  - Adverse event [None]

NARRATIVE: CASE EVENT DATE: 20140825
